FAERS Safety Report 4300010-9 (Version None)
Quarter: 2004Q1

REPORT INFORMATION
  Report Type: 
  Country: None (occurrence: None)
  Receive Date: 20040218
  Receipt Date: 20040204
  Transmission Date: 20041129
  Serious: Yes (Hospitalization)
  Sender: FDA-Public Use
  Company Number: 2004AP00663

PATIENT
  Age: 79 Year
  Sex: Female

DRUGS (5)
  1. IRESSA [Suspect]
     Indication: LUNG NEOPLASM MALIGNANT
     Dosage: 250 MG DAILY PO
     Route: 048
     Dates: start: 20030820, end: 20031110
  2. STILNOCT [Concomitant]
  3. SOBRIL [Concomitant]
  4. LEVAXIN [Concomitant]
  5. CITALOPRAM [Concomitant]

REACTIONS (6)
  - C-REACTIVE PROTEIN INCREASED [None]
  - FALL [None]
  - INFECTION IN AN IMMUNOCOMPROMISED HOST [None]
  - PELVIC FRACTURE [None]
  - PYREXIA [None]
  - WHITE BLOOD CELL COUNT INCREASED [None]
